FAERS Safety Report 9936043 (Version 2)
Quarter: 2015Q3

REPORT INFORMATION
  Report Type: Spontaneous
  Country: US (occurrence: US)
  Receive Date: 20140228
  Receipt Date: 20150817
  Transmission Date: 20151125
  Serious: No
  Sender: FDA-Public Use
  Company Number: US-GILEAD-2014-0095590

PATIENT
  Age: 69 Year
  Sex: Female

DRUGS (1)
  1. LETAIRIS [Suspect]
     Active Substance: AMBRISENTAN
     Indication: PRODUCT USED FOR UNKNOWN INDICATION
     Dosage: 5 MG, QD
     Route: 048
     Dates: start: 20130601

REACTIONS (9)
  - Asthma [Unknown]
  - Pain in extremity [Unknown]
  - Varicose vein [Unknown]
  - Asthenia [Unknown]
  - Dizziness [Unknown]
  - Anaemia [Unknown]
  - Headache [Unknown]
  - Dyspnoea [Unknown]
  - Chest discomfort [Unknown]
